FAERS Safety Report 20610203 (Version 2)
Quarter: 2022Q1

REPORT INFORMATION
  Report Type: Spontaneous
  Country: US (occurrence: US)
  Receive Date: 20220318
  Receipt Date: 20220328
  Transmission Date: 20220424
  Serious: No
  Sender: FDA-Public Use
  Company Number: US-ALXN-A202203466

PATIENT
  Age: 27 Year
  Sex: Female
  Weight: 121 kg

DRUGS (20)
  1. SOLIRIS [Suspect]
     Active Substance: ECULIZUMAB
     Indication: Paroxysmal nocturnal haemoglobinuria
     Dosage: UNK, EVERY 10 DAYS
     Route: 042
     Dates: start: 20190412
  2. SOLIRIS [Suspect]
     Active Substance: ECULIZUMAB
     Dosage: UNK, EVERY 14 DAYS
     Route: 042
     Dates: start: 20210311
  3. PROBIOTICS NOS [Concomitant]
     Active Substance: PROBIOTICS NOS
     Indication: Probiotic therapy
     Dosage: 1 DF, QD, 250 BILLION CELL
     Route: 048
     Dates: start: 20190705
  4. FOLIC ACID [Concomitant]
     Active Substance: FOLIC ACID
     Indication: Product used for unknown indication
     Dosage: 800 ?G, BID
     Route: 065
     Dates: start: 20190705
  5. HYOSCYAMINE [Concomitant]
     Active Substance: HYOSCYAMINE
     Indication: Muscle spasms
     Dosage: 0.125 MG, Q4H, MAX 1.5MG/DAY
     Route: 060
     Dates: start: 20200106
  6. LEVSIN SL [Concomitant]
     Active Substance: HYOSCYAMINE SULFATE
     Indication: Abdominal rigidity
     Dosage: 0.125 MG, Q4H, MAX 1.5MG/DAY
     Route: 060
     Dates: start: 20190925
  7. LIDOCAINE AND PRILOCAINE [Concomitant]
     Active Substance: LIDOCAINE\PRILOCAINE
     Indication: Product used for unknown indication
     Dosage: UNK
     Route: 061
     Dates: start: 20190402
  8. LIDOCAINE AND PRILOCAINE [Concomitant]
     Active Substance: LIDOCAINE\PRILOCAINE
     Dosage: UNK
     Route: 061
     Dates: start: 20200604
  9. LIDOCAINE AND PRILOCAINE [Concomitant]
     Active Substance: LIDOCAINE\PRILOCAINE
     Dosage: UNK
     Route: 061
     Dates: start: 20210922
  10. LIDOCAINE [Concomitant]
     Active Substance: LIDOCAINE
     Indication: Product used for unknown indication
     Dosage: UNK
     Route: 061
     Dates: start: 20190402
  11. LOMOTIL                            /00384302/ [Concomitant]
     Indication: Diarrhoea
     Dosage: 2 DF, PRN (UP TO 4 TIMES PER DAY), 2.5 MG-0.025 MG
     Route: 048
     Dates: start: 20190912
  12. LOVENOX [Concomitant]
     Active Substance: ENOXAPARIN SODIUM
     Indication: Product used for unknown indication
     Dosage: 40MG/0.4 ML, QD
     Route: 058
     Dates: start: 20210728
  13. LOVENOX [Concomitant]
     Active Substance: ENOXAPARIN SODIUM
     Dosage: 40MG/0.4 ML, QD
     Route: 058
     Dates: start: 20210922
  14. MULTIVITAMIN                       /00097801/ [Concomitant]
     Indication: Vitamin supplementation
     Dosage: 1 DF, QD
     Route: 048
     Dates: start: 20190705
  15. NORETHINDRONE                      /00044901/ [Concomitant]
     Indication: Oral contraception
     Dosage: 0.35 MG, QD
     Route: 048
     Dates: start: 20190322
  16. PENICILLIN V POTASSIUM [Concomitant]
     Active Substance: PENICILLIN V POTASSIUM
     Indication: Product used for unknown indication
     Dosage: 250 MG, BID
     Route: 048
     Dates: start: 20210922
  17. PENICILLIN V POTASSIUM [Concomitant]
     Active Substance: PENICILLIN V POTASSIUM
     Dosage: 250 MG, BID
     Route: 048
     Dates: start: 20190402
  18. PENICILLIN V POTASSIUM [Concomitant]
     Active Substance: PENICILLIN V POTASSIUM
     Indication: Product used for unknown indication
     Dosage: 5 ML, BID (250 MG/5ML ORAL SOLUTION)
     Route: 048
     Dates: start: 20211105
  19. PERCOCET [Concomitant]
     Active Substance: ACETAMINOPHEN\OXYCODONE HYDROCHLORIDE
     Indication: Pain
     Dosage: 1 DF (5-325 MG), QD
     Route: 048
     Dates: start: 20200313
  20. ZOFRAN                             /00955301/ [Concomitant]
     Indication: Nausea
     Dosage: 8 MG, PRN (EVERY 8 TO 12 HRS AS DIRECTED)
     Route: 048

REACTIONS (3)
  - Cholelithiasis [Unknown]
  - Laboratory test abnormal [Unknown]
  - Off label use [Unknown]

NARRATIVE: CASE EVENT DATE: 20210616
